FAERS Safety Report 8141473-0 (Version None)
Quarter: 2012Q1

REPORT INFORMATION
  Report Type: 
  Country: None (occurrence: None)
  Receive Date: 20120216
  Receipt Date: 20120208
  Transmission Date: 20120608
  Serious: Yes (Hospitalization)
  Sender: FDA-Public Use
  Company Number: JP-ROCHE-1026615

PATIENT
  Sex: Female

DRUGS (6)
  1. RANIBIZUMAB [Suspect]
     Indication: AGE-RELATED MACULAR DEGENERATION
     Route: 050
     Dates: start: 20090618
  2. RANIBIZUMAB [Suspect]
     Dates: start: 20090723
  3. RANIBIZUMAB [Suspect]
     Dosage: DROPPED OUT OF STUDY
     Dates: start: 20100813
  4. DEPAS [Concomitant]
  5. CILOSTAZOL [Concomitant]
  6. NORVASC [Concomitant]

REACTIONS (1)
  - BREAST CANCER [None]
